FAERS Safety Report 9900008 (Version 1)
Quarter: 2014Q1

REPORT INFORMATION
  Report Type: Spontaneous
  Country: US (occurrence: US)
  Receive Date: 20140214
  Receipt Date: 20140214
  Transmission Date: 20141002
  Serious: No
  Sender: FDA-Public Use
  Company Number: US-VIVUS-2013V1000936

PATIENT
  Age: 39 Year
  Sex: Female
  Weight: 81.72 kg

DRUGS (6)
  1. QSYMIA 3.75MG/23MG [Suspect]
     Indication: WEIGHT DECREASED
     Route: 048
     Dates: start: 20131228
  2. LANTUS [Concomitant]
     Indication: TYPE 2 DIABETES MELLITUS
     Dosage: SINCE AGE 27
     Route: 058
  3. NOVOLOG [Concomitant]
     Indication: TYPE 2 DIABETES MELLITUS
     Dosage: SLIDING SCALE
     Route: 058
     Dates: start: 201310
  4. CRESTOR [Concomitant]
     Indication: BLOOD CHOLESTEROL INCREASED
     Route: 048
     Dates: start: 2012
  5. HYDROCODONE [Concomitant]
     Indication: ARTHRITIS
     Dosage: 10MG/500MG
     Route: 048
     Dates: start: 2003
  6. XANAX [Concomitant]
     Indication: ANXIETY
     Route: 048
     Dates: start: 2002

REACTIONS (1)
  - Headache [Not Recovered/Not Resolved]
